FAERS Safety Report 17917840 (Version 1)
Quarter: 2020Q2

REPORT INFORMATION
  Report Type: Spontaneous
  Country: US (occurrence: US)
  Receive Date: 20200619
  Receipt Date: 20200619
  Transmission Date: 20200714
  Serious: Yes (Life-Threatening, Hospitalization, Other)
  Sender: FDA-Public Use
  Company Number: US-ALVOGEN-2020-ALVOGEN-108618

PATIENT
  Age: 55 Year
  Sex: Male

DRUGS (1)
  1. OXYCODONE [Suspect]
     Active Substance: OXYCODONE
     Indication: BACK PAIN
     Dosage: 24 TABLETS OF 30 MG OVER 48-HOUR?PERIOD
     Route: 048

REACTIONS (8)
  - Accidental overdose [Recovering/Resolving]
  - Multiple organ dysfunction syndrome [Recovering/Resolving]
  - Myelitis transverse [Recovering/Resolving]
  - Shock [Recovering/Resolving]
  - Acute respiratory failure [Recovering/Resolving]
  - Myelopathy [Recovering/Resolving]
  - Spinal cord ischaemia [Recovering/Resolving]
  - Hypotension [Recovering/Resolving]
